FAERS Safety Report 5826715-6 (Version None)
Quarter: 2008Q3

REPORT INFORMATION
  Report Type: 
  Country: None (occurrence: None)
  Receive Date: 20080728
  Receipt Date: 20080728
  Transmission Date: 20090109
  Serious: Yes (Other)
  Sender: FDA-Public Use
  Company Number: None

PATIENT
  Age: 50 Year
  Sex: Female
  Weight: 65.7716 kg

DRUGS (1)
  1. CEPHALEXIN [Suspect]
     Indication: VULVOVAGINAL PRURITUS
     Dosage: 1 TABLET TWICE DAILY PO
     Route: 048
     Dates: start: 20080701, end: 20080714

REACTIONS (1)
  - VAGINAL INFECTION [None]
